FAERS Safety Report 6991463-6 (Version None)
Quarter: 2010Q3

REPORT INFORMATION
  Report Type: 
  Country: None (occurrence: None)
  Receive Date: 20100916
  Receipt Date: 20090914
  Transmission Date: 20110219
  Serious: No
  Sender: FDA-Public Use
  Company Number: US-WYE-H11000309

PATIENT
  Sex: Female

DRUGS (2)
  1. ADVIL PM [Suspect]
     Indication: ANALGESIC THERAPY
     Dosage: 1 CAPLET BEFORE SLEEP
     Route: 048
     Dates: start: 20090912, end: 20090913
  2. AMOXICILLIN [Concomitant]

REACTIONS (3)
  - CONDITION AGGRAVATED [None]
  - DRUG INEFFECTIVE [None]
  - TOOTHACHE [None]
